FAERS Safety Report 13155751 (Version 1)
Quarter: 2017Q1

REPORT INFORMATION
  Report Type: Spontaneous
  Country: US (occurrence: US)
  Receive Date: 20170126
  Receipt Date: 20170126
  Transmission Date: 20170428
  Serious: No
  Sender: FDA-Public Use
  Company Number: US-ROCHE-1047960

PATIENT
  Sex: Male

DRUGS (5)
  1. DIAZEPAM. [Suspect]
     Active Substance: DIAZEPAM
     Indication: MUSCLE SPASMS
  2. VALIUM [Suspect]
     Active Substance: DIAZEPAM
     Indication: MUSCLE SPASMS
     Route: 048
  3. MORPHINE [Concomitant]
     Active Substance: MORPHINE
     Indication: PAIN
  4. DIAZEPAM. [Suspect]
     Active Substance: DIAZEPAM
     Indication: PAIN
  5. VALIUM [Suspect]
     Active Substance: DIAZEPAM
     Indication: PAIN

REACTIONS (4)
  - Muscle spasms [Unknown]
  - Hiccups [Unknown]
  - Pain [Unknown]
  - Emotional distress [Unknown]
